FAERS Safety Report 5565826-X (Version None)
Quarter: 2007Q4

REPORT INFORMATION
  Report Type: 
  Country: None (occurrence: None)
  Receive Date: 20071022
  Receipt Date: 20071206
  Transmission Date: 20080405
  Serious: Yes (Death)
  Sender: FDA-Public Use
  Company Number: US-BRACCO-BDI-010612

PATIENT
  Age: 89 Year
  Sex: Male

DRUGS (3)
  1. MULTIHANCE [Suspect]
     Indication: CAROTID ARTERY STENOSIS
     Route: 013
     Dates: start: 20071006, end: 20071006
  2. MULTIHANCE [Suspect]
     Indication: ANGIOGRAM
     Route: 013
     Dates: start: 20071006, end: 20071006
  3. OXYGEN DEPENDENT [Concomitant]
     Route: 045

REACTIONS (2)
  - CARDIAC ARREST [None]
  - PARAESTHESIA [None]
